FAERS Safety Report 18838093 (Version 1)
Quarter: 2021Q1

REPORT INFORMATION
  Report Type: Spontaneous
  Country: US (occurrence: US)
  Receive Date: 20210203
  Receipt Date: 20210203
  Transmission Date: 20210419
  Serious: Yes (Other)
  Sender: FDA-Public Use
  Company Number: US-TAKEDA-2021TUS004190

PATIENT
  Sex: Female
  Weight: 73 kg

DRUGS (7)
  1. LOSARTAN. [Concomitant]
     Active Substance: LOSARTAN
     Indication: HYPERTENSION
     Dosage: 100 MILLIGRAM, QD
     Route: 065
  2. PENTASA [Suspect]
     Active Substance: MESALAMINE
     Dosage: 1000 MILLIGRAM, QID
     Route: 065
  3. IMODIUM [Concomitant]
     Active Substance: LOPERAMIDE HYDROCHLORIDE
     Indication: DIARRHOEA
     Dosage: UNK UNK, QD
     Route: 065
  4. EUTHYROX [Concomitant]
     Active Substance: LEVOTHYROXINE SODIUM
     Indication: THYROID DISORDER
     Dosage: 25 MILLIGRAM, QD
     Route: 065
  5. AMLODIPINE [Concomitant]
     Active Substance: AMLODIPINE BESYLATE
     Indication: HYPERTENSION
     Dosage: 10 MILLIGRAM, QD
     Route: 065
  6. PENTASA [Suspect]
     Active Substance: MESALAMINE
     Indication: CROHN^S DISEASE
     Dosage: 1000 MILLIGRAM, BID
     Route: 065
  7. ATENOLOL/CHLORTHALIDONE [Concomitant]
     Active Substance: ATENOLOL\CHLORTHALIDONE
     Indication: HYPERTENSION
     Dosage: 50/25 MILLIGRAM, QD
     Route: 065

REACTIONS (3)
  - Arthritis [Unknown]
  - Post procedural diarrhoea [Unknown]
  - Rotator cuff repair [Unknown]
